FAERS Safety Report 18636360 (Version 2)
Quarter: 2021Q1

REPORT INFORMATION
  Report Type: Spontaneous
  Country: IL (occurrence: IL)
  Receive Date: 20201218
  Receipt Date: 20210107
  Transmission Date: 20210419
  Serious: Yes (Hospitalization, Other)
  Sender: FDA-Public Use
  Company Number: IL-SA-2020SA359120

PATIENT

DRUGS (2)
  1. TOUJEO [Suspect]
     Active Substance: INSULIN GLARGINE
     Dosage: 20?30 IU DEPENDING ON THE VALUES
     Route: 065
  2. NOVONORM [Concomitant]
     Active Substance: REPAGLINIDE
     Dosage: UNK UNK, QD

REACTIONS (3)
  - Pulmonary oedema [Unknown]
  - Dyspnoea [Not Recovered/Not Resolved]
  - Gait disturbance [Not Recovered/Not Resolved]
